FAERS Safety Report 7808495-8 (Version None)
Quarter: 2011Q4

REPORT INFORMATION
  Report Type: 
  Country: None (occurrence: None)
  Receive Date: 20111011
  Receipt Date: 20111011
  Transmission Date: 20120403
  Serious: Yes (Hospitalization)
  Sender: FDA-Public Use
  Company Number: None

PATIENT
  Sex: Male
  Weight: 14.1 kg

DRUGS (6)
  1. CYCLOPHOSPHAMIDE [Concomitant]
  2. VINCRISTINE [Concomitant]
  3. ETOPOSIDE [Concomitant]
  4. METHOTREXATE [Concomitant]
  5. CISPLATIN [Concomitant]
  6. SODIUM THIOSULFATE [Suspect]
     Dosage: 7.5625 G

REACTIONS (1)
  - FEBRILE NEUTROPENIA [None]
